FAERS Safety Report 4980463-3 (Version None)
Quarter: 2006Q2

REPORT INFORMATION
  Report Type: 
  Country: None (occurrence: None)
  Receive Date: 20060424
  Receipt Date: 20060120
  Transmission Date: 20061013
  Serious: No
  Sender: FDA-Public Use
  Company Number: US-GLAXOSMITHKLINE-A0590294A

PATIENT
  Sex: Female

DRUGS (1)
  1. BEXXAR [Suspect]
     Route: 042

REACTIONS (4)
  - ANOREXIA [None]
  - FATIGUE [None]
  - PYREXIA [None]
  - WEIGHT DECREASED [None]
